FAERS Safety Report 8256853-2 (Version None)
Quarter: 2012Q1

REPORT INFORMATION
  Report Type: 
  Country: None (occurrence: None)
  Receive Date: 20120322
  Receipt Date: 20120214
  Transmission Date: 20120608
  Serious: Yes (Death)
  Sender: FDA-Public Use
  Company Number: UTC-015625

PATIENT
  Age: 72 Year
  Sex: Male
  Weight: 51.82 kg

DRUGS (2)
  1. TYVASO [Suspect]
     Indication: PULMONARY HYPERTENSION
     Dosage: 18 TO 54 MICROGRAMS (4 IN 1 D) , INHALATION
     Dates: start: 20110719, end: 20111201
  2. TYVASO [Suspect]
     Indication: COR PULMONALE CHRONIC
     Dosage: 18 TO 54 MICROGRAMS (4 IN 1 D) , INHALATION
     Dates: start: 20110719, end: 20111201

REACTIONS (1)
  - DEATH [None]
